FAERS Safety Report 14532383 (Version 1)
Quarter: 2018Q1

REPORT INFORMATION
  Report Type: Spontaneous
  Country: SK (occurrence: SK)
  Receive Date: 20180214
  Receipt Date: 20180214
  Transmission Date: 20180509
  Serious: Yes (Hospitalization)
  Sender: FDA-Public Use
  Company Number: SK-ELI_LILLY_AND_COMPANY-SK201802001505

PATIENT
  Sex: Female
  Weight: 67 kg

DRUGS (2)
  1. LANTUS [Suspect]
     Active Substance: INSULIN GLARGINE
     Indication: TYPE 2 DIABETES MELLITUS
     Dosage: 18 IU, UNKNOWN
     Route: 058
  2. HUMULIN N [Suspect]
     Active Substance: INSULIN HUMAN
     Indication: TYPE 2 DIABETES MELLITUS
     Dosage: 17-8-6 UNITS
     Route: 065

REACTIONS (8)
  - Blood glucose abnormal [Recovering/Resolving]
  - Glycosylated haemoglobin increased [Unknown]
  - Hyperglycaemia [Unknown]
  - Ketoacidosis [Recovered/Resolved]
  - Loss of consciousness [Recovering/Resolving]
  - Ketonuria [Recovered/Resolved]
  - Hypoglycaemia [Recovering/Resolving]
  - Weight increased [Recovering/Resolving]
